FAERS Safety Report 6781894-1 (Version None)
Quarter: 2010Q2

REPORT INFORMATION
  Report Type: 
  Country: None (occurrence: None)
  Receive Date: 20100621
  Receipt Date: 20100611
  Transmission Date: 20101027
  Serious: Yes (Other)
  Sender: FDA-Public Use
  Company Number: GXKR2010VE06477

PATIENT
  Age: 85 Year
  Sex: Female

DRUGS (2)
  1. ALENDRONIC ACID (NGX) [Suspect]
     Dosage: ONCE DAILY
     Route: 065
     Dates: start: 19980101
  2. ALENDRONIC ACID (NGX) [Suspect]
     Dosage: ONCE WEEKLY
     Route: 065

REACTIONS (5)
  - FALL [None]
  - FEMUR FRACTURE [None]
  - OSTEOSYNTHESIS [None]
  - PAIN IN EXTREMITY [None]
  - PATHOLOGICAL FRACTURE [None]
